FAERS Safety Report 24667755 (Version 1)
Quarter: 2024Q4

REPORT INFORMATION
  Report Type: Spontaneous
  Country: ES (occurrence: ES)
  Receive Date: 20241127
  Receipt Date: 20241127
  Transmission Date: 20250114
  Serious: Yes (Hospitalization, Other)
  Sender: VELOXIS PHARMACEUTICALS
  Company Number: ES-ASTELLAS-2017US020244

PATIENT
  Age: 60 Year
  Sex: Male

DRUGS (9)
  1. TACROLIMUS [Suspect]
     Active Substance: TACROLIMUS
     Indication: Renal transplant
     Dosage: 8 MG, ONCE DAILY (PER 24 HOURS), DOSE FREQUENCY UNIT: 8 MG-MILLIGRAMS; DOSE PER DOSE: 8 MG-MILLIGRAM
     Route: 065
     Dates: start: 2015
  2. SULFAMETHOXAZOLE\TRIMETHOPRIM [Suspect]
     Active Substance: SULFAMETHOXAZOLE\TRIMETHOPRIM
     Indication: Product used for unknown indication
     Dosage: 80/400 MG, ONCE DAILY; NUMBER OF DOSES PER FREQUENCY UNIT: 1; FREQUENCY UNIT: 1 DAY
     Route: 065
     Dates: start: 2015
  3. HYDROCORTISONE [Concomitant]
     Active Substance: HYDROCORTISONE
     Indication: Adrenal insufficiency
     Dosage: 60 MG, ONCE DAILY (PER 24 HOURS); DOSE FREQUENCY UNIT: 60 MG-MILLIGRAMS; DOSE PER DOSE: 60 MG-MILLIG
     Route: 065
  4. HYDROCORTISONE [Concomitant]
     Active Substance: HYDROCORTISONE
     Dosage: 20 MG, ONCE DAILY (PER 24 HOURS); DOSE FREQUENCY UNIT: 20 MG-MILLIGRAMS; DOSE PER INTAKE: 20 MG-MILL
     Route: 065
  5. HYDROCORTISONE [Concomitant]
     Active Substance: HYDROCORTISONE
     Dosage: 20 MG, ONCE DAILY (PER 24 HOURS); DOSE UNIT FREQUENCY: 200 MG-MILLIGRAMS; DOSE PER DOSE: 200 MG-MILL
     Route: 042
  6. HYDROCORTISONE [Concomitant]
     Active Substance: HYDROCORTISONE
     Dosage: 30 MG, ONCE DAILY (PER 24 HOURS), DOSE FREQUENCY UNIT: 30 MG-MILLIGRAMS, DOSE PER INTAKE: 30 MG-MILL
     Route: 065
  7. PREDNISONE [Concomitant]
     Active Substance: PREDNISONE
     Indication: Renal transplant
     Dosage: 20 MG, ONCE DAILY (PER 24 HOURS), DOSE FREQUENCY UNIT: 20 MG-MILLIGRAMS, DOSE PER DOSE: 20 MG-MILLIG
     Route: 065
  8. MYCOPHENOLATE MOFETIL [Concomitant]
     Active Substance: MYCOPHENOLATE MOFETIL
     Indication: Renal transplant
     Dosage: 20 MG, ONCE DAILY (PER 24 HOURS), DOSE FREQUENCY UNIT: 1000 MG-MILLIGRAMS, DOSE PER DOSE: 1000 MG-MI
     Route: 065
  9. VALGANCICLOVIR [Concomitant]
     Active Substance: VALGANCICLOVIR
     Indication: Product used for unknown indication
     Dosage: 20 MG, ONCE DAILY (PER 24 HOURS), DOSE FREQUENCY UNIT: 450 MG-MILLIGRAMS, DOSE PER DOSE: 450 MG-MILL
     Route: 065

REACTIONS (1)
  - Adrenocortical insufficiency acute [Recovered/Resolved]

NARRATIVE: CASE EVENT DATE: 20150101
